FAERS Safety Report 5277152-7 (Version None)
Quarter: 2007Q1

REPORT INFORMATION
  Report Type: 
  Country: None (occurrence: None)
  Receive Date: 20070322
  Receipt Date: 20070322
  Transmission Date: 20070707
  Serious: Yes (Hospitalization)
  Sender: FDA-Public Use
  Company Number: None

PATIENT
  Age: 38 Year
  Sex: Male
  Weight: 92.9874 kg

DRUGS (4)
  1. CLOZAPINE [Suspect]
     Indication: SCHIZOAFFECTIVE DISORDER
     Dosage: 300MG DAILY PO
     Route: 048
     Dates: start: 20070118, end: 20070307
  2. HALDOL [Concomitant]
  3. DEPAKOTE [Concomitant]
  4. QUETIAPINE FUMARATE [Concomitant]

REACTIONS (4)
  - BLOOD GLUCOSE INCREASED [None]
  - LETHARGY [None]
  - POLLAKIURIA [None]
  - THIRST [None]
